FAERS Safety Report 4556553-6 (Version None)
Quarter: 2005Q1

REPORT INFORMATION
  Report Type: 
  Country: None (occurrence: None)
  Receive Date: 20050114
  Receipt Date: 20050107
  Transmission Date: 20050727
  Serious: Yes (Death)
  Sender: FDA-Public Use
  Company Number: FLX20050001

PATIENT
  Age: 26 Year
  Sex: Male

DRUGS (3)
  1. FLUOXETINE [Suspect]
     Dosage: PO
     Route: 048
     Dates: end: 20000101
  2. NORTRIPTYLINE HCL [Suspect]
     Dosage: PO
     Route: 048
     Dates: end: 20000101
  3. GAMMAHYDROXYBUTYRATE (GHB) [Suspect]
     Dates: end: 20000101

REACTIONS (2)
  - DRUG TOXICITY [None]
  - GAS POISONING [None]
